FAERS Safety Report 25008913 (Version 1)
Quarter: 2025Q1

REPORT INFORMATION
  Report Type: Spontaneous
  Country: ES (occurrence: ES)
  Receive Date: 20250225
  Receipt Date: 20250225
  Transmission Date: 20250409
  Serious: Yes (Hospitalization)
  Sender: ROCHE
  Company Number: None

PATIENT
  Age: 58 Year
  Sex: Male

DRUGS (2)
  1. MABTHERA [Suspect]
     Active Substance: RITUXIMAB
     Indication: Sjogren^s syndrome
     Route: 042
     Dates: start: 20241227, end: 20250110
  2. PREDNISONE [Suspect]
     Active Substance: PREDNISONE
     Indication: Myelopathy
     Route: 048
     Dates: start: 20241223

REACTIONS (6)
  - Hypoacusis [Recovering/Resolving]
  - Vision blurred [Recovering/Resolving]
  - Ophthalmic herpes simplex [Recovering/Resolving]
  - Herpes simplex meningitis [Recovering/Resolving]
  - Sudden hearing loss [Recovering/Resolving]
  - Retinitis viral [Recovering/Resolving]

NARRATIVE: CASE EVENT DATE: 20250102
